FAERS Safety Report 7113597-8 (Version None)
Quarter: 2010Q4

REPORT INFORMATION
  Report Type: 
  Country: None (occurrence: None)
  Receive Date: 20101119
  Receipt Date: 20101112
  Transmission Date: 20110411
  Serious: Yes (Hospitalization, Other)
  Sender: FDA-Public Use
  Company Number: DE-ROCHE-735250

PATIENT
  Sex: Female
  Weight: 93 kg

DRUGS (8)
  1. HERCEPTIN [Suspect]
     Indication: BREAST CANCER
     Route: 042
     Dates: start: 20091106, end: 20100701
  2. FLUOROURACIL [Concomitant]
     Indication: BREAST CANCER
     Dosage: 4 CYCLES, IN COMBINATION WITH TRASTUZUMAB
     Dates: start: 20090501, end: 20090701
  3. ADRIAMYCIN PFS [Concomitant]
     Indication: BREAST CANCER
     Dosage: 4 CYCLES, IN COMBINATION WITH TRASTUZUMAB
     Dates: start: 20090501, end: 20090701
  4. CYCLOPHOSPHAMIDE [Concomitant]
     Indication: BREAST CANCER
     Dosage: 4 CYCLES, IN COMBINATION WITH TRASTUZUMAB
     Dates: start: 20090501, end: 20090701
  5. TAXOTERE [Concomitant]
     Indication: BREAST CANCER
     Dosage: IN COMBINATION WITH TRASTUZUMAB
     Dates: start: 20090801, end: 20091001
  6. METOPROLOL [Concomitant]
     Indication: ESSENTIAL TREMOR
  7. ASPIRIN [Concomitant]
     Route: 048
  8. METOPROLOL SUCCINATE [Concomitant]
     Indication: HYPERTENSION
     Dosage: OTHER INDICATION: TREMOR
     Route: 048

REACTIONS (7)
  - ASTHENIA [None]
  - DEPRESSION [None]
  - DIZZINESS [None]
  - ENCEPHALITIS [None]
  - FACIAL PARESIS [None]
  - FATIGUE [None]
  - MONOPARESIS [None]
